FAERS Safety Report 8089009-7 (Version None)
Quarter: 2012Q1

REPORT INFORMATION
  Report Type: 
  Country: None (occurrence: None)
  Receive Date: 20120128
  Receipt Date: 20110706
  Transmission Date: 20120608
  Serious: No
  Sender: FDA-Public Use
  Company Number: US-ABBOTT-11P-163-0837325-00

PATIENT
  Sex: Male

DRUGS (7)
  1. ENTOCORT EC [Concomitant]
     Indication: CROHN'S DISEASE
  2. ADVAIR DISKUS 100/50 [Concomitant]
     Indication: ASTHMA
  3. HUMIRA [Suspect]
     Indication: CROHN'S DISEASE
     Dates: start: 20110624, end: 20110624
  4. PENTASA [Concomitant]
     Indication: CROHN'S DISEASE
  5. AZATHIOPRINE [Concomitant]
     Indication: CROHN'S DISEASE
  6. HUMIRA [Suspect]
  7. HUMIRA [Suspect]

REACTIONS (1)
  - INSOMNIA [None]
